FAERS Safety Report 6142664-0 (Version None)
Quarter: 2009Q2

REPORT INFORMATION
  Report Type: 
  Country: None (occurrence: None)
  Receive Date: 20090403
  Receipt Date: 20090324
  Transmission Date: 20091009
  Serious: Yes (Hospitalization, Other)
  Sender: FDA-Public Use
  Company Number: DE-BAYER-200917491GPV

PATIENT
  Sex: Female

DRUGS (1)
  1. YASMIN [Suspect]
     Indication: ENDOMETRIOSIS

REACTIONS (9)
  - ALOPECIA [None]
  - ANXIETY [None]
  - ARRHYTHMIA [None]
  - BREAST TENDERNESS [None]
  - ECZEMA [None]
  - HOT FLUSH [None]
  - NERVOUSNESS [None]
  - PANIC ATTACK [None]
  - WEIGHT DECREASED [None]
